FAERS Safety Report 19700503 (Version 2)
Quarter: 2021Q4

REPORT INFORMATION
  Report Type: Report from Study
  Country: US (occurrence: US)
  Receive Date: 20210813
  Receipt Date: 20211008
  Transmission Date: 20220304
  Serious: Yes (Other)
  Sender: FDA-Public Use
  Company Number: US-PFIZER INC-202101008888

PATIENT
  Age: 64 Year
  Sex: Female
  Weight: 83 kg

DRUGS (4)
  1. GABAPENTIN [Suspect]
     Active Substance: GABAPENTIN
     Dosage: 300 MG, UNKNOWN FREQUENCY
     Dates: start: 20210528
  2. GOCOVRI [Suspect]
     Active Substance: AMANTADINE
     Indication: Dyskinesia
     Dosage: 137 MG, 1X/DAY (EVERY NIGHT AT BEDTIME)
     Route: 048
     Dates: start: 20210528, end: 20210610
  3. GOCOVRI [Suspect]
     Active Substance: AMANTADINE
     Dosage: 274 MG, 1X/DAY (EVERY NIGHT AT BEDTIME)
     Route: 048
     Dates: start: 20210611
  4. CARBIDOPA, LEVODOPA AND ENTACAPONE [Concomitant]
     Active Substance: CARBIDOPA\ENTACAPONE\LEVODOPA
     Dosage: UNK
     Dates: start: 20210528

REACTIONS (6)
  - Hallucination, visual [Recovering/Resolving]
  - Balance disorder [Recovered/Resolved]
  - Constipation [Not Recovered/Not Resolved]
  - Visual impairment [Recovering/Resolving]
  - Somnolence [Unknown]
  - Fatigue [Unknown]

NARRATIVE: CASE EVENT DATE: 20210101
